FAERS Safety Report 5933726-9 (Version None)
Quarter: 2008Q4

REPORT INFORMATION
  Report Type: 
  Country: None (occurrence: None)
  Receive Date: 20081027
  Receipt Date: 20081015
  Transmission Date: 20090506
  Serious: Yes (Other)
  Sender: FDA-Public Use
  Company Number: 2008087164

PATIENT
  Age: 54 Year
  Sex: Male

DRUGS (2)
  1. FRAGMIN [Suspect]
     Dosage: (2500 I.U.)
  2. WARFARIN SODIUM [Suspect]

REACTIONS (1)
  - EPILEPSY [None]
